FAERS Safety Report 5291197-2 (Version None)
Quarter: 2007Q2

REPORT INFORMATION
  Report Type: 
  Country: None (occurrence: None)
  Receive Date: 20070409
  Receipt Date: 20070405
  Transmission Date: 20071010
  Serious: Yes (Disabling)
  Sender: FDA-Public Use
  Company Number: US-ALLERGAN-0601366US

PATIENT
  Sex: Female
  Weight: 47.165 kg

DRUGS (2)
  1. BOTOX COSMETIC [Suspect]
     Indication: SKIN WRINKLING
     Dosage: 33 UNITS, SINGLE
     Dates: start: 20060525, end: 20060525
  2. STEROID INJECTION [Concomitant]
     Indication: CUTANEOUS LUPUS ERYTHEMATOSUS
     Dosage: UNK, UNK
     Route: 051
     Dates: start: 20060525, end: 20060525

REACTIONS (9)
  - DYSGEUSIA [None]
  - FACIAL PAIN [None]
  - INSOMNIA [None]
  - MIGRAINE [None]
  - NAUSEA [None]
  - PHONOPHOBIA [None]
  - PHOTOPHOBIA [None]
  - VISUAL DISTURBANCE [None]
  - VOMITING [None]
